FAERS Safety Report 6405754-0 (Version None)
Quarter: 2009Q4

REPORT INFORMATION
  Report Type: 
  Country: None (occurrence: None)
  Receive Date: 20091019
  Receipt Date: 20090216
  Transmission Date: 20100525
  Serious: Yes (Hospitalization, Other)
  Sender: FDA-Public Use
  Company Number: DE-BAYER-200935583GPV

PATIENT
  Age: 68 Year
  Sex: Male

DRUGS (2)
  1. VARDENAFIL [Suspect]
     Indication: DRUG USE FOR UNKNOWN INDICATION
     Dosage: TAKEN SPORADICALLY 5 TIMES OVER 2 WEEKS
  2. LAMISIL [Concomitant]
     Indication: FUNGAL INFECTION

REACTIONS (4)
  - BLINDNESS UNILATERAL [None]
  - OPTIC ISCHAEMIC NEUROPATHY [None]
  - RETINAL ARTERY OCCLUSION [None]
  - RETINAL INFARCTION [None]
